FAERS Safety Report 6128486-5 (Version None)
Quarter: 2009Q1

REPORT INFORMATION
  Report Type: 
  Country: None (occurrence: None)
  Receive Date: 20090323
  Receipt Date: 20090316
  Transmission Date: 20090719
  Serious: Yes (Life-Threatening)
  Sender: FDA-Public Use
  Company Number: DE-GENENTECH-279453

PATIENT
  Age: 69 Year
  Sex: Female

DRUGS (1)
  1. ACTIVASE [Suspect]
     Indication: FIBRINOLYSIS
     Dosage: 90 MG, SINGLE
     Route: 042

REACTIONS (2)
  - ANGIOEDEMA [None]
  - RESPIRATORY FAILURE [None]
